FAERS Safety Report 16862154 (Version 1)
Quarter: 2019Q4

REPORT INFORMATION
  Report Type: Spontaneous
  Country: US (occurrence: US)
  Receive Date: 20190927
  Receipt Date: 20190927
  Transmission Date: 20200122
  Serious: Yes (Life-Threatening, Hospitalization, Disabling)
  Sender: FDA-Public Use
  Company Number: None

PATIENT
  Age: 69 Year
  Sex: Male
  Weight: 81.65 kg

DRUGS (11)
  1. ELIQUIS [Concomitant]
     Active Substance: APIXABAN
  2. ELIQUIS [Concomitant]
     Active Substance: APIXABAN
  3. LISINOPRIL/HCTZ [Concomitant]
     Active Substance: HYDROCHLOROTHIAZIDE\LISINOPRIL
  4. NORCO [Concomitant]
     Active Substance: ACETAMINOPHEN\HYDROCODONE BITARTRATE
  5. TRULICITY [Suspect]
     Active Substance: DULAGLUTIDE
     Indication: ANAPHYLACTIC REACTION
     Route: 058
  6. LANTUS [Concomitant]
     Active Substance: INSULIN GLARGINE
  7. PRAVA STATIN [Concomitant]
  8. CIPROFIOXIN [Concomitant]
  9. BACTRIM DS [Concomitant]
     Active Substance: SULFAMETHOXAZOLE\TRIMETHOPRIM
  10. REVATIO [Concomitant]
     Active Substance: SILDENAFIL CITRATE
  11. LIDOCAINE OINTMENT [Concomitant]
     Active Substance: LIDOCAINE

REACTIONS (2)
  - Hypersensitivity [None]
  - Apparent life threatening event [None]

NARRATIVE: CASE EVENT DATE: 20190912
